FAERS Safety Report 4463644-7 (Version None)
Quarter: 2004Q3

REPORT INFORMATION
  Report Type: 
  Country: None (occurrence: None)
  Receive Date: 20040929
  Receipt Date: 20040915
  Transmission Date: 20050211
  Serious: Yes (Hospitalization)
  Sender: FDA-Public Use
  Company Number: FR_040904777

PATIENT
  Age: 14 Year
  Sex: Male
  Weight: 53 kg

DRUGS (1)
  1. UMATROPE (SOMATROPIN) [Suspect]
     Indication: DWARFISM
     Dosage: 12 MG WEEK
     Dates: start: 19990217

REACTIONS (1)
  - STRESS FRACTURE [None]
